FAERS Safety Report 12976009 (Version 1)
Quarter: 2016Q4

REPORT INFORMATION
  Report Type: Spontaneous
  Country: CN (occurrence: CN)
  Receive Date: 20161126
  Receipt Date: 20161126
  Transmission Date: 20170207
  Serious: Yes (Hospitalization)
  Sender: FDA-Public Use
  Company Number: CN-ASTRAZENECA-2016SF25680

PATIENT
  Age: 29 Year
  Sex: Female

DRUGS (2)
  1. MEROPEM [Suspect]
     Active Substance: MEROPENEM
     Indication: ANTI-INFECTIVE THERAPY
     Route: 042
     Dates: start: 20160818, end: 20160827
  2. MEROPEM [Suspect]
     Active Substance: MEROPENEM
     Indication: PELVIC INFECTION
     Route: 042
     Dates: start: 20160818, end: 20160827

REACTIONS (4)
  - Mucous stools [Recovered/Resolved]
  - Abdominal pain lower [Recovered/Resolved]
  - Dysbacteriosis [Unknown]
  - Diarrhoea [Recovered/Resolved]

NARRATIVE: CASE EVENT DATE: 20160824
